FAERS Safety Report 6117010-9 (Version None)
Quarter: 2009Q1

REPORT INFORMATION
  Report Type: 
  Country: None (occurrence: None)
  Receive Date: 20090314
  Receipt Date: 20090105
  Transmission Date: 20090719
  Serious: No
  Sender: FDA-Public Use
  Company Number: US-ABBOTT-09P-163-0495952-00

PATIENT
  Sex: Male
  Weight: 63.56 kg

DRUGS (3)
  1. HUMIRA [Suspect]
     Indication: CROHN'S DISEASE
     Dosage: ONCE
     Dates: start: 20081225
  2. PENTASA [Concomitant]
     Indication: CROHN'S DISEASE
     Dosage: 8 PILLS IN ONE DAY
  3. PREDNISONE [Concomitant]
     Indication: CROHN'S DISEASE

REACTIONS (3)
  - INCORRECT DOSE ADMINISTERED [None]
  - SINUS OPERATION [None]
  - WRONG TECHNIQUE IN DRUG USAGE PROCESS [None]
